FAERS Safety Report 7325156-2 (Version None)
Quarter: 2011Q1

REPORT INFORMATION
  Report Type: 
  Country: None (occurrence: None)
  Receive Date: 20110302
  Receipt Date: 20110221
  Transmission Date: 20110831
  Serious: Yes (Hospitalization)
  Sender: FDA-Public Use
  Company Number: PHHO2011US03365

PATIENT
  Age: 57 Year
  Sex: Male

DRUGS (3)
  1. AFINITOR [Suspect]
     Indication: HEAD AND NECK CANCER
     Dosage: UNK
     Route: 048
     Dates: start: 20110114, end: 20110207
  2. RADIATION [Suspect]
  3. CISPLATIN [Suspect]
     Indication: HEAD AND NECK CANCER
     Dosage: UNK
     Dates: start: 20110114, end: 20110207

REACTIONS (5)
  - FAILURE TO THRIVE [None]
  - MALAISE [None]
  - ASTHENIA [None]
  - FATIGUE [None]
  - LETHARGY [None]
